FAERS Safety Report 12759863 (Version 1)
Quarter: 2016Q3

REPORT INFORMATION
  Report Type: Spontaneous
  Country: IT (occurrence: IT)
  Receive Date: 20160919
  Receipt Date: 20160919
  Transmission Date: 20161109
  Serious: Yes (Life-Threatening, Hospitalization, Other)
  Sender: FDA-Public Use
  Company Number: IT-MYLANLABS-2016M1038950

PATIENT

DRUGS (3)
  1. PERJETA [Suspect]
     Active Substance: PERTUZUMAB
     Indication: HER-2 POSITIVE BREAST CANCER
     Dosage: UNK
     Dates: start: 20160620, end: 20160725
  2. PACLITAXEL. [Suspect]
     Active Substance: PACLITAXEL
     Indication: HER-2 POSITIVE BREAST CANCER
     Dosage: UNK UNK, QW
     Route: 042
     Dates: start: 20160627, end: 20160725
  3. HERCEPTIN [Suspect]
     Active Substance: TRASTUZUMAB
     Indication: HER-2 POSITIVE BREAST CANCER
     Dosage: UNK
     Route: 042
     Dates: start: 20160620, end: 20160725

REACTIONS (7)
  - Sinus pain [Unknown]
  - Headache [Unknown]
  - Hypersensitivity [Unknown]
  - Pulmonary toxicity [Unknown]
  - Respiratory distress [Unknown]
  - Superinfection bacterial [Unknown]
  - Lung infiltration [Unknown]

NARRATIVE: CASE EVENT DATE: 2016
